FAERS Safety Report 16563964 (Version 2)
Quarter: 2019Q3

REPORT INFORMATION
  Report Type: Spontaneous
  Country: FR (occurrence: FR)
  Receive Date: 20190712
  Receipt Date: 20190726
  Transmission Date: 20191004
  Serious: Yes (Other)
  Sender: FDA-Public Use
  Company Number: FR-SA-2019SA186458

PATIENT
  Age: 75 Year
  Sex: Female
  Weight: 75 kg

DRUGS (3)
  1. VAXIGRIPTETRA [Suspect]
     Active Substance: INFLUENZA VIRUS VACCINE QUADRIVALENT TYPE A+B
     Indication: IMMUNISATION
     Dosage: 1 DF
     Route: 030
     Dates: start: 20181105
  2. PRAVASTATIN WINTHROP [Suspect]
     Active Substance: PRAVASTATIN SODIUM
     Indication: CORONARY ARTERY DISEASE
     Dosage: 10 MG
     Route: 048
     Dates: start: 20181003, end: 20181113
  3. CLOPIDOGREL BISULFATE. [Suspect]
     Active Substance: CLOPIDOGREL BISULFATE
     Indication: CORONARY ARTERY DISEASE
     Dosage: UNK
     Route: 048
     Dates: start: 20181003, end: 20181128

REACTIONS (6)
  - Headache [Unknown]
  - Hepatocellular injury [Recovered/Resolved]
  - Dyspepsia [Unknown]
  - Abdominal pain upper [Unknown]
  - Arthralgia [Unknown]
  - Fatigue [Unknown]

NARRATIVE: CASE EVENT DATE: 201811
